FAERS Safety Report 4478188-6 (Version None)
Quarter: 2004Q3

REPORT INFORMATION
  Report Type: 
  Country: None (occurrence: None)
  Receive Date: 20040923
  Receipt Date: 20040726
  Transmission Date: 20050211
  Serious: No
  Sender: FDA-Public Use
  Company Number: USA040773333

PATIENT
  Age: 88 Year
  Sex: Female
  Weight: 52 kg

DRUGS (7)
  1. FORTEO [Suspect]
     Indication: OSTEOPOROSIS
     Dosage: 20 UG DAY
     Dates: start: 20040602
  2. FORTEO [Suspect]
     Indication: THERAPY NON-RESPONDER
     Dosage: 20 UG DAY
     Dates: start: 20040602
  3. LIPITOR [Concomitant]
  4. ASACOL [Concomitant]
  5. HYDROCHLOROTHIAZIDE [Concomitant]
  6. L- [Concomitant]
  7. CALCIUM WITH VITAMIN D [Concomitant]

REACTIONS (3)
  - DIZZINESS [None]
  - FEELING ABNORMAL [None]
  - HEART RATE INCREASED [None]
